FAERS Safety Report 16747114 (Version 1)
Quarter: 2019Q3

REPORT INFORMATION
  Report Type: Spontaneous
  Country: US (occurrence: US)
  Receive Date: 20190709
  Receipt Date: 20190709
  Transmission Date: 20191005
  Serious: Yes (Hospitalization)
  Sender: FDA-Public Use
  Company Number: None

PATIENT
  Age: 56 Year
  Sex: Male
  Weight: 68 kg

DRUGS (5)
  1. LOPRESSOR [Suspect]
     Active Substance: METOPROLOL TARTRATE
  2. IPILIMUMAB 1MG/KG [Suspect]
     Active Substance: IPILIMUMAB
     Indication: SARCOMA
  3. XARELTO [Suspect]
     Active Substance: RIVAROXABAN
  4. NIVOLUMAB [Suspect]
     Active Substance: NIVOLUMAB
     Indication: SARCOMA
  5. ELIQUIS [Suspect]
     Active Substance: APIXABAN

REACTIONS (11)
  - Gram stain negative [None]
  - Metastases to lung [None]
  - Wound infection [None]
  - Cellulitis [None]
  - Tumour necrosis [None]
  - Malignant neoplasm progression [None]
  - Abscess soft tissue [None]
  - Sepsis [None]
  - Hyponatraemia [None]
  - Swelling [None]
  - Wound drainage [None]

NARRATIVE: CASE EVENT DATE: 20181202
